FAERS Safety Report 4452105-7 (Version None)
Quarter: 2004Q3

REPORT INFORMATION
  Report Type: 
  Country: None (occurrence: None)
  Receive Date: 20040917
  Receipt Date: 20040908
  Transmission Date: 20050211
  Serious: Yes (Death)
  Sender: FDA-Public Use
  Company Number: US-JNJFOC-20040902573

PATIENT
  Sex: Male

DRUGS (9)
  1. NIZORAL [Suspect]
     Route: 049
     Dates: start: 20040706, end: 20040906
  2. LISINOPRIL [Suspect]
  3. LISINOPRIL [Suspect]
     Indication: BLOOD PRESSURE
  4. DIGOXIN [Suspect]
  5. LASIX [Suspect]
     Indication: DRUG USE FOR UNKNOWN INDICATION
  6. ZOMATA [Concomitant]
     Route: 042
  7. LUPRON [Concomitant]
     Route: 030
  8. HYDROCORTISONE [Concomitant]
     Route: 049
  9. HYDROCORTISONE [Concomitant]
     Route: 049

REACTIONS (1)
  - DEATH [None]
